FAERS Safety Report 8583009-6 (Version None)
Quarter: 2012Q3

REPORT INFORMATION
  Report Type: 
  Country: None (occurrence: None)
  Receive Date: 20120809
  Receipt Date: 20120801
  Transmission Date: 20120928
  Serious: Yes (Other)
  Sender: FDA-Public Use
  Company Number: JP-ABBOTT-99H-087-0083769-00

PATIENT
  Age: 29 Year
  Sex: Male

DRUGS (4)
  1. OXYGEN [Concomitant]
     Indication: ANAESTHESIA
     Route: 065
  2. FENTANYL [Concomitant]
     Indication: ANAESTHESIA
     Route: 065
  3. NITROUS OXIDE [Concomitant]
     Indication: ANAESTHESIA
     Route: 065
  4. FORANE [Suspect]
     Indication: INTRACRANIAL ANEURYSM
     Route: 065

REACTIONS (2)
  - HYPERTHERMIA MALIGNANT [None]
  - CARDIAC ARREST [None]
